FAERS Safety Report 7492378-X (Version None)
Quarter: 2011Q2

REPORT INFORMATION
  Report Type: 
  Country: None (occurrence: None)
  Receive Date: 20110519
  Receipt Date: 20110509
  Transmission Date: 20111010
  Serious: Yes (Other)
  Sender: FDA-Public Use
  Company Number: US-CEPHALON-2011002258

PATIENT
  Sex: Female
  Weight: 62 kg

DRUGS (6)
  1. NUVIGIL [Suspect]
     Route: 048
     Dates: start: 20090601
  2. TRAUMEEL [Concomitant]
  3. VALIUM [Concomitant]
  4. NUVIGIL [Suspect]
     Indication: HYPERSOMNIA
     Route: 048
     Dates: start: 20090601
  5. OXYCODONE HCL AND ACETAMINOPHEN [Concomitant]
     Dates: start: 20090101
  6. PROZAC [Concomitant]
     Dates: start: 20100101

REACTIONS (2)
  - INSOMNIA [None]
  - HAEMORRHAGE [None]
